FAERS Safety Report 7090101-4 (Version None)
Quarter: 2010Q4

REPORT INFORMATION
  Report Type: 
  Country: None (occurrence: None)
  Receive Date: 20101109
  Receipt Date: 20101028
  Transmission Date: 20110411
  Serious: Yes (Disabling)
  Sender: FDA-Public Use
  Company Number: US-BAYER-201034215NA

PATIENT
  Age: 44 Year
  Sex: Female

DRUGS (10)
  1. AVELOX [Suspect]
     Indication: EAR INFECTION
     Dosage: TOTAL DAILY DOSE: 200 MG  UNIT DOSE: 200 MG
     Route: 048
     Dates: start: 20100917, end: 20100917
  2. AVELOX [Suspect]
     Dosage: TOTAL DAILY DOSE: 400 MG  UNIT DOSE: 400 MG
     Route: 048
     Dates: start: 20100916, end: 20100918
  3. SYNTHROID [Concomitant]
     Dosage: TOTAL DAILY DOSE: 175 ?G  UNIT DOSE: 175 ?G
  4. LASIX [Concomitant]
  5. LORAZEPAM [Concomitant]
  6. ETODOLAC [Concomitant]
     Dosage: BID PRN
  7. CIPRO [Concomitant]
  8. FENOFIBRATE [Concomitant]
  9. NIACIN [Concomitant]
     Route: 048
  10. EFFEXOR [Concomitant]

REACTIONS (5)
  - DYSPEPSIA [None]
  - EXTREMITY CONTRACTURE [None]
  - FEELING ABNORMAL [None]
  - MUSCLE SPASMS [None]
  - VOMITING [None]
